FAERS Safety Report 5746238-2 (Version None)
Quarter: 2008Q2

REPORT INFORMATION
  Report Type: 
  Country: None (occurrence: None)
  Receive Date: 20080522
  Receipt Date: 20080514
  Transmission Date: 20081010
  Serious: Yes (Hospitalization, Other)
  Sender: FDA-Public Use
  Company Number: PHBS2007BR12170

PATIENT
  Age: 66 Year
  Sex: Male
  Weight: 68 kg

DRUGS (4)
  1. EYE DROPS [Concomitant]
  2. GALVUS [Suspect]
     Indication: DIABETES MELLITUS
     Dosage: 100 MG
     Route: 048
  3. METFORMIN HCL [Suspect]
     Indication: DIABETES MELLITUS
     Dosage: 850 MG BID
  4. COLLYRIUNS [Concomitant]

REACTIONS (5)
  - BLINDNESS [None]
  - DIABETES MELLITUS INADEQUATE CONTROL [None]
  - EYE OPERATION [None]
  - PANOPHTHALMITIS [None]
  - RETINAL DETACHMENT [None]
